FAERS Safety Report 10762665 (Version 1)
Quarter: 2015Q1

REPORT INFORMATION
  Report Type: Spontaneous
  Country: US (occurrence: None)
  Receive Date: 20150129
  Receipt Date: 20150129
  Transmission Date: 20150721
  Serious: Yes (Other)
  Sender: FDA-Public Use
  Company Number: 2014006800

PATIENT
  Age: 48 Year
  Sex: Male
  Weight: 83.9 kg

DRUGS (5)
  1. LYRICA [Concomitant]
     Active Substance: PREGABALIN
  2. LORTAB (HYDROCODONE BITARTRATE, PARACETAMOL, PROMETHAZINE HYDROCHLORIDE) [Concomitant]
  3. KEPPRA XR [Suspect]
     Active Substance: LEVETIRACETAM
     Indication: SEIZURE
     Route: 048
     Dates: start: 201310
  4. PRAVASTAN (PRAVASTATIN SODIUM) [Concomitant]
  5. AMITRIPTYLINE (AMITRIPTYLINE HYDROCHLORIDE) [Concomitant]

REACTIONS (2)
  - Inappropriate schedule of drug administration [None]
  - Seizure [None]

NARRATIVE: CASE EVENT DATE: 201310
